FAERS Safety Report 8054201-4 (Version None)
Quarter: 2012Q1

REPORT INFORMATION
  Report Type: 
  Country: None (occurrence: None)
  Receive Date: 20120118
  Receipt Date: 20120117
  Transmission Date: 20120608
  Serious: Yes (Death)
  Sender: FDA-Public Use
  Company Number: GB-ROCHE-1030857

PATIENT
  Age: 54 Year
  Sex: Male
  Weight: 90 kg

DRUGS (3)
  1. CAPECITABINE [Suspect]
     Indication: GASTRIC CANCER
     Route: 048
     Dates: start: 20111201, end: 20111201
  2. CISPLATIN [Concomitant]
     Indication: GASTRIC CANCER
     Route: 042
  3. DAUNORUBICIN HCL [Concomitant]
     Indication: GASTRIC CANCER
     Route: 042

REACTIONS (3)
  - CARDIAC ARREST [None]
  - HYPOXIC-ISCHAEMIC ENCEPHALOPATHY [None]
  - VENTRICULAR FIBRILLATION [None]
